FAERS Safety Report 24644726 (Version 2)
Quarter: 2024Q4

REPORT INFORMATION
  Report Type: Spontaneous
  Country: JP (occurrence: JP)
  Receive Date: 20241121
  Receipt Date: 20241209
  Transmission Date: 20250115
  Serious: Yes (Death, Other)
  Sender: COLLEGIUM PHARMACEUTICAL
  Company Number: JP-PURDUE PHARMA-USA-2024-0311242

PATIENT
  Age: 74 Year
  Sex: Male

DRUGS (8)
  1. SYMPROIC [Suspect]
     Active Substance: NALDEMEDINE
     Indication: Tinnitus
     Dosage: 0.2 MILLIGRAM, QD
     Route: 065
  2. OXYCODONE HYDROCHLORIDE TRIHYDRATE [Suspect]
     Active Substance: OXYCODONE HYDROCHLORIDE TRIHYDRATE
     Indication: Abdominal pain
     Dosage: 10 MILLIGRAM, DAILY
     Route: 065
  3. TRAMADOL HYDROCHLORIDE [Suspect]
     Active Substance: TRAMADOL HYDROCHLORIDE
     Indication: Abdominal pain
     Dosage: 200 MILLIGRAM, DAILY
     Route: 065
  4. HYDROMORPHONE HYDROCHLORIDE [Suspect]
     Active Substance: HYDROMORPHONE HYDROCHLORIDE
     Indication: Abdominal pain
     Dosage: 10 MILLIGRAM, DAILY
     Route: 065
  5. HYDROMORPHONE HYDROCHLORIDE [Suspect]
     Active Substance: HYDROMORPHONE HYDROCHLORIDE
     Dosage: 48 MILLIGRAM, DAILY
     Route: 065
  6. TAPENTADOL HYDROCHLORIDE [Suspect]
     Active Substance: TAPENTADOL HYDROCHLORIDE
     Indication: Abdominal pain
     Dosage: 300 MILLIGRAM, DAILY
     Route: 065
  7. TAPENTADOL HYDROCHLORIDE [Suspect]
     Active Substance: TAPENTADOL HYDROCHLORIDE
     Dosage: 800 MILLIGRAM, DAILY
     Route: 065
  8. DIPHENHYDRAMINE [Concomitant]
     Active Substance: DIPHENHYDRAMINE
     Indication: Tinnitus
     Dosage: UNK UNK, UNKNOWN
     Route: 065

REACTIONS (3)
  - Death [Fatal]
  - Ototoxicity [Recovered/Resolved]
  - Off label use [Unknown]
